FAERS Safety Report 9347015 (Version 4)
Quarter: 2014Q2

REPORT INFORMATION
  Report Type: Spontaneous
  Country: CA (occurrence: CA)
  Receive Date: 20130613
  Receipt Date: 20140604
  Transmission Date: 20141212
  Serious: Yes (Other)
  Sender: FDA-Public Use
  Company Number: CA-GLAXOSMITHKLINE-A0954521A

PATIENT
  Age: 82 Year
  Sex: Female
  Weight: 83.6 kg

DRUGS (5)
  1. ADVAIR [Suspect]
     Indication: ASTHMA
     Dosage: 1PUFF TWICE PER DAY
     Route: 055
     Dates: start: 2004
  2. UNKNOWN MEDICATION [Concomitant]
  3. CRESTOR [Concomitant]
  4. RAMIPRIL [Concomitant]
  5. ASA [Concomitant]
     Dosage: 80MG UNKNOWN
     Route: 065

REACTIONS (19)
  - Dysphonia [Not Recovered/Not Resolved]
  - Abnormal dreams [Recovered/Resolved]
  - Dyspnoea [Recovered/Resolved]
  - Throat tightness [Recovered/Resolved]
  - Cough [Recovered/Resolved]
  - Rhinorrhoea [Recovered/Resolved]
  - Sneezing [Recovered/Resolved]
  - Bronchitis [Not Recovered/Not Resolved]
  - Asthma [Recovered/Resolved]
  - Adverse event [Recovered/Resolved]
  - Lung disorder [Recovered/Resolved]
  - Bronchial hyperreactivity [Unknown]
  - Cardiac failure [Unknown]
  - Respiratory tract infection [Unknown]
  - Balance disorder [Unknown]
  - Fall [Unknown]
  - Contusion [Unknown]
  - Dyspnoea [Recovered/Resolved]
  - Treatment noncompliance [Not Recovered/Not Resolved]
